FAERS Safety Report 8871932 (Version 1)
Quarter: 2012Q4

REPORT INFORMATION
  Report Type: 
  Country: US (occurrence: US)
  Receive Date: 20121023
  Receipt Date: 20121023
  Transmission Date: 20130627
  Serious: Yes (Hospitalization, Other)
  Sender: FDA-Public Use
  Company Number: US-009507513-1204USA01065

PATIENT

DRUGS (5)
  1. FOSAMAX [Suspect]
     Indication: OSTEOPOROSIS
     Dosage: UNK mg, UNK
     Route: 048
     Dates: start: 1997, end: 200610
  2. FOSAMAX [Suspect]
     Dosage: 70 mg, qw
     Route: 048
  3. FOSAMAX [Suspect]
     Indication: OSTEOPOROSIS
     Dosage: 70 mg, qw
     Route: 048
  4. ALENDRONATE SODIUM [Suspect]
     Dosage: 70 mg, UNK
  5. COUMADIN [Concomitant]
     Indication: THROMBOSIS

REACTIONS (33)
  - Open reduction of fracture [Unknown]
  - Cerebrovascular accident [Unknown]
  - Arterial therapeutic procedure [Unknown]
  - Colectomy [Unknown]
  - Pulmonary embolism [Unknown]
  - Coronary artery bypass [Unknown]
  - Pulmonary embolism [Unknown]
  - Venous operation [Unknown]
  - Femur fracture [Unknown]
  - Vitamin D deficiency [Unknown]
  - Blood cholesterol increased [Unknown]
  - Hypertension [Unknown]
  - Osteoarthritis [Unknown]
  - Muscle strain [Unknown]
  - Osteopenia [Unknown]
  - Deep vein thrombosis [Unknown]
  - Arteriosclerosis [Unknown]
  - Chronic obstructive pulmonary disease [Not Recovered/Not Resolved]
  - Peripheral vascular disorder [Unknown]
  - Venous insufficiency [Not Recovered/Not Resolved]
  - Weight decreased [Unknown]
  - Pulmonary fibrosis [Unknown]
  - Pulmonary hypertension [Unknown]
  - Dilatation ventricular [Unknown]
  - Tricuspid valve incompetence [Unknown]
  - Large intestine polyp [Unknown]
  - Bronchitis [Unknown]
  - Viral upper respiratory tract infection [Unknown]
  - Bronchitis [Unknown]
  - Cerumen impaction [Unknown]
  - Diabetes mellitus [Unknown]
  - Back pain [Unknown]
  - Oedema peripheral [Not Recovered/Not Resolved]
